FAERS Safety Report 18018331 (Version 1)
Quarter: 2020Q3

REPORT INFORMATION
  Report Type: Spontaneous
  Country: FR (occurrence: FR)
  Receive Date: 20200713
  Receipt Date: 20200713
  Transmission Date: 20201103
  Serious: Yes (Other)
  Sender: FDA-Public Use
  Company Number: FR-ABBVIE-20K-056-3480869-00

PATIENT
  Sex: Female

DRUGS (4)
  1. VENCLYXTO [Suspect]
     Active Substance: VENETOCLAX
     Route: 048
  2. VENCLYXTO [Suspect]
     Active Substance: VENETOCLAX
     Indication: PRODUCT USED FOR UNKNOWN INDICATION
     Route: 048
  3. VENCLYXTO [Suspect]
     Active Substance: VENETOCLAX
     Route: 048
  4. VIDAZA [Concomitant]
     Active Substance: AZACITIDINE
     Indication: PRODUCT USED FOR UNKNOWN INDICATION

REACTIONS (1)
  - HIV infection [Unknown]
